FAERS Safety Report 6718543-4 (Version None)
Quarter: 2010Q2

REPORT INFORMATION
  Report Type: 
  Country: None (occurrence: None)
  Receive Date: 20100503
  Receipt Date: 20100421
  Transmission Date: 20101027
  Serious: Yes (Other)
  Sender: FDA-Public Use
  Company Number: 567614

PATIENT
  Age: 29 Year
  Sex: Female
  Weight: 58.97 kg

DRUGS (4)
  1. LACTATED RINGER'S [Suspect]
     Indication: DRUG USE FOR UNKNOWN INDICATION
     Dosage: 500 CC, INTRAVENOUS
     Route: 042
     Dates: start: 20100421, end: 20100421
  2. PHENERGAN [Concomitant]
  3. PRENATAL VITAMINS [Concomitant]
  4. ZOFRAN [Concomitant]

REACTIONS (4)
  - ERYTHEMA [None]
  - HYPERSENSITIVITY [None]
  - PRURITUS [None]
  - URTICARIA [None]
